FAERS Safety Report 16876937 (Version 1)
Quarter: 2019Q4

REPORT INFORMATION
  Report Type: Spontaneous
  Country: US (occurrence: US)
  Receive Date: 20191002
  Receipt Date: 20191002
  Transmission Date: 20200122
  Serious: No
  Sender: FDA-Public Use
  Company Number: US-AMGEN-USASP2019159602

PATIENT
  Age: 85 Year
  Sex: Female

DRUGS (3)
  1. KYPROLIS [Suspect]
     Active Substance: CARFILZOMIB
     Dosage: 70 MILLIGRAM/SQ. METER
     Route: 065
     Dates: start: 20190924
  2. KYPROLIS [Suspect]
     Active Substance: CARFILZOMIB
     Dosage: LOW DOSE, QWK
     Route: 065
     Dates: start: 201909
  3. KYPROLIS [Suspect]
     Active Substance: CARFILZOMIB
     Indication: PRODUCT USED FOR UNKNOWN INDICATION
     Dosage: UNK
     Route: 065

REACTIONS (1)
  - Infusion site pain [Unknown]

NARRATIVE: CASE EVENT DATE: 20190924
